FAERS Safety Report 7324112-8 (Version None)
Quarter: 2011Q1

REPORT INFORMATION
  Report Type: 
  Country: None (occurrence: None)
  Receive Date: 20110201
  Receipt Date: 20100209
  Transmission Date: 20110831
  Serious: Yes (Other)
  Sender: FDA-Public Use
  Company Number: WAES 1002USA01768

PATIENT
  Age: 45 Year
  Sex: Female

DRUGS (1)
  1. PRIMAXIN [Suspect]
     Indication: URINARY TRACT INFECTION

REACTIONS (2)
  - CONVULSION [None]
  - CONVULSIVE THRESHOLD LOWERED [None]
